FAERS Safety Report 6751059-8 (Version None)
Quarter: 2010Q2

REPORT INFORMATION
  Report Type: 
  Country: None (occurrence: None)
  Receive Date: 20100602
  Receipt Date: 20100520
  Transmission Date: 20101027
  Serious: Yes (Hospitalization, Other)
  Sender: FDA-Public Use
  Company Number: PHHY2010NO34595

PATIENT
  Sex: Female

DRUGS (2)
  1. PARLODEL [Suspect]
     Indication: LACTATION INHIBITION THERAPY
     Dosage: 2.5 MG, BID
     Route: 048
     Dates: start: 20100427, end: 20100429
  2. PENICILLIN V POTASSIUM [Concomitant]
     Indication: MASTITIS POSTPARTUM
     Dosage: UNK
     Dates: start: 20100427, end: 20100427

REACTIONS (4)
  - BUNDLE BRANCH BLOCK LEFT [None]
  - DYSPNOEA [None]
  - PRESYNCOPE [None]
  - SYNCOPE [None]
